FAERS Safety Report 6939251-0 (Version None)
Quarter: 2010Q3

REPORT INFORMATION
  Report Type: 
  Country: None (occurrence: None)
  Receive Date: 20100824
  Receipt Date: 20100820
  Transmission Date: 20110219
  Serious: Yes (Hospitalization)
  Sender: FDA-Public Use
  Company Number: US-CEPHALON-2010004242

PATIENT
  Sex: Male
  Weight: 68 kg

DRUGS (13)
  1. TREANDA [Suspect]
     Indication: CHRONIC LYMPHOCYTIC LEUKAEMIA
     Route: 042
     Dates: start: 20100803, end: 20100804
  2. OFATUMUMAB [Suspect]
     Indication: CHRONIC LYMPHOCYTIC LEUKAEMIA
     Route: 042
     Dates: start: 20100803, end: 20100803
  3. LANTUS [Concomitant]
     Dates: start: 20050909
  4. METFORMIN [Concomitant]
     Dates: start: 20070309
  5. DECADRON [Concomitant]
     Dates: start: 20100803
  6. LISINOPRIL [Concomitant]
     Dates: start: 20070309
  7. AMBIEN [Concomitant]
     Dates: start: 20090512
  8. GLUCOSAMINE [Concomitant]
  9. PRILOSEC [Concomitant]
     Dates: start: 20100427
  10. BENADRYL [Concomitant]
  11. ACETAMINOPHEN [Concomitant]
     Dates: start: 20100803
  12. ONDANSETRON [Concomitant]
     Dates: start: 20100803
  13. ALLOPURINOL [Concomitant]
     Dates: start: 20100802, end: 20100808

REACTIONS (1)
  - TUMOUR LYSIS SYNDROME [None]
